FAERS Safety Report 25087458 (Version 1)
Quarter: 2025Q1

REPORT INFORMATION
  Report Type: Spontaneous
  Country: GB (occurrence: GB)
  Receive Date: 20250318
  Receipt Date: 20250318
  Transmission Date: 20250409
  Serious: Yes (Other)
  Sender: DEXCEL
  Company Number: GB-MHRA-TPP39070295C7349957YC1741704399248

PATIENT
  Age: 85 Year
  Sex: Male
  Weight: 82 kg

DRUGS (15)
  1. ISOSORBIDE MONONITRATE [Suspect]
     Active Substance: ISOSORBIDE MONONITRATE
     Indication: Ill-defined disorder
     Dates: start: 20250303, end: 20250311
  2. ISOPROPYL MYRISTATE\MINERAL OIL [Concomitant]
     Active Substance: ISOPROPYL MYRISTATE\MINERAL OIL
     Indication: Ill-defined disorder
     Dates: start: 20250117, end: 20250214
  3. PROPRANOLOL [Concomitant]
     Active Substance: PROPRANOLOL HYDROCHLORIDE
     Indication: Ill-defined disorder
     Dates: start: 20250117, end: 20250214
  4. GLYCERYL TRINITRATEGLYCERYL TRINITRATE (Specific Substance SUB6220) [Concomitant]
     Indication: Ill-defined disorder
     Dates: start: 20250206, end: 20250308
  5. AMLODIPINE [Concomitant]
     Active Substance: AMLODIPINE BESYLATE
     Indication: Ill-defined disorder
     Dates: start: 20220509
  6. APIXABANAPIXABAN (Specific Substance SUB10017) [Concomitant]
     Indication: Ill-defined disorder
     Dates: start: 20220509
  7. LORATADINELORATADINE (Specific Substance SUB720) [Concomitant]
     Indication: Ill-defined disorder
     Dates: start: 20220509
  8. OMEPRAZOLEOMEPRAZOLE (Specific Substance SUB722) [Concomitant]
     Indication: Ill-defined disorder
     Dates: start: 20220509
  9. QVAR [Concomitant]
     Active Substance: BECLOMETHASONE DIPROPIONATE
     Indication: Ill-defined disorder
     Dates: start: 20220509
  10. ALBUTEROL [Concomitant]
     Active Substance: ALBUTEROL
     Indication: Ill-defined disorder
     Dates: start: 20220509
  11. TAMSULOSIN HYDROCHLORIDE [Concomitant]
     Active Substance: TAMSULOSIN HYDROCHLORIDE
     Indication: Ill-defined disorder
     Dates: start: 20220509
  12. ZOLPIDEM [Concomitant]
     Active Substance: ZOLPIDEM TARTRATE
     Indication: Ill-defined disorder
     Dates: start: 20220509
  13. EZETIMIBE [Concomitant]
     Active Substance: EZETIMIBE
     Indication: Ill-defined disorder
     Dates: start: 20240305
  14. FINASTERIDE [Concomitant]
     Active Substance: FINASTERIDE
     Indication: Ill-defined disorder
     Dates: start: 20240607
  15. ALGINATEALGINIC ACID (Specific Substance SUB3694) [Concomitant]
     Indication: Ill-defined disorder
     Dates: start: 20241106

REACTIONS (1)
  - Hallucination [Recovered/Resolved]
